FAERS Safety Report 8607414-4 (Version None)
Quarter: 2012Q3

REPORT INFORMATION
  Report Type: 
  Country: None (occurrence: None)
  Receive Date: 20120821
  Receipt Date: 20120815
  Transmission Date: 20120928
  Serious: Yes (Other)
  Sender: FDA-Public Use
  Company Number: US-AMGEN-USASP2012052037

PATIENT
  Age: 22 Year
  Sex: Female

DRUGS (10)
  1. DACARBAZINE [Concomitant]
     Indication: HODGKIN'S DISEASE
  2. TYLENOL PM [Concomitant]
  3. NEULASTA [Suspect]
     Indication: NEUTROPENIA
     Dosage: UNK UNK, Q2WK
     Dates: start: 20120620
  4. MOTRIN [Concomitant]
     Indication: BONE PAIN
  5. CLARITIN                           /00917501/ [Concomitant]
     Indication: BONE PAIN
     Dosage: UNK UNK, Q2WK
  6. ADRIAMYCIN PFS [Concomitant]
     Indication: HODGKIN'S DISEASE
  7. TYLENOL (CAPLET) [Concomitant]
  8. BLEOMYCIN [Concomitant]
     Indication: HODGKIN'S DISEASE
  9. RECLIPSEN [Concomitant]
  10. VINBLASTINE SULFATE [Concomitant]
     Indication: HODGKIN'S DISEASE

REACTIONS (8)
  - OROPHARYNGEAL PAIN [None]
  - DYSURIA [None]
  - SWELLING [None]
  - HEART RATE INCREASED [None]
  - BONE PAIN [None]
  - PHARYNGEAL OEDEMA [None]
  - DYSPHAGIA [None]
  - PAIN [None]
